FAERS Safety Report 21558566 (Version 2)
Quarter: 2022Q4

REPORT INFORMATION
  Report Type: Spontaneous
  Country: IT (occurrence: None)
  Receive Date: 20221107
  Receipt Date: 20221123
  Transmission Date: 20230113
  Serious: Yes (Other)
  Sender: FDA-Public Use
  Company Number: IT-ROCHE-3206090

PATIENT
  Age: 82 Year
  Sex: Female

DRUGS (9)
  1. ATEZOLIZUMAB [Suspect]
     Active Substance: ATEZOLIZUMAB
     Indication: Hepatocellular carcinoma
     Dosage: AND II CYCLE OF THE TREATMENT, AS PER SCHEME ATEZOLIZUMAB (1200 MG IN TOTAL) GL Q21
     Route: 065
     Dates: start: 20220530, end: 20220620
  2. BEVACIZUMAB [Suspect]
     Active Substance: BEVACIZUMAB
     Indication: Hepatocellular carcinoma
     Dosage: I AND II CYCLE OF THE TREATMENT, AS PER SCHEME BEVACIZUMAB (15 MG/KG) GL Q21
     Route: 065
     Dates: start: 20220530, end: 20220620
  3. INTERFERON [Concomitant]
     Active Substance: INTERFERON
     Indication: Hepatitis C
     Dates: start: 2004
  4. HYDROCHLOROTHIAZIDE\LOSARTAN POTASSIUM [Concomitant]
     Active Substance: HYDROCHLOROTHIAZIDE\LOSARTAN POTASSIUM
     Indication: Liver disorder
  5. BISOPROLOL [Concomitant]
     Active Substance: BISOPROLOL
     Indication: Liver disorder
  6. LEVOTHYROXINE SODIUM [Concomitant]
     Active Substance: LEVOTHYROXINE SODIUM
     Indication: Hypothyroidism
     Dosage: 75 MCG,
  7. METFORMIN [Concomitant]
     Active Substance: METFORMIN HYDROCHLORIDE
     Indication: Diabetes mellitus
  8. ASPIRIN [Concomitant]
     Active Substance: ASPIRIN
  9. TRIAZOLAM [Concomitant]
     Active Substance: TRIAZOLAM

REACTIONS (6)
  - Hyponatraemia [Unknown]
  - Hypertension [Unknown]
  - Conversion disorder [Unknown]
  - Periorbital haematoma [Recovering/Resolving]
  - Bundle branch block left [Unknown]
  - Cerebral haematoma [Recovering/Resolving]

NARRATIVE: CASE EVENT DATE: 20220719
